FAERS Safety Report 6157715-7 (Version None)
Quarter: 2009Q2

REPORT INFORMATION
  Report Type: 
  Country: None (occurrence: None)
  Receive Date: 20090416
  Receipt Date: 20090409
  Transmission Date: 20091009
  Serious: Yes (Other)
  Sender: FDA-Public Use
  Company Number: US-AMGEN-QUU342436

PATIENT
  Sex: Female

DRUGS (3)
  1. EPOGEN [Suspect]
     Indication: ANAEMIA
     Dates: start: 20080101
  2. GLIPIZIDE [Suspect]
  3. INSULIN [Concomitant]

REACTIONS (1)
  - APLASIA PURE RED CELL [None]
